FAERS Safety Report 6453346-X (Version None)
Quarter: 2009Q4

REPORT INFORMATION
  Report Type: 
  Country: None (occurrence: None)
  Receive Date: 20091124
  Receipt Date: 20091112
  Transmission Date: 20100525
  Serious: Yes (Hospitalization)
  Sender: FDA-Public Use
  Company Number: FR-WYE-H12199909

PATIENT
  Age: 67 Year
  Sex: Male

DRUGS (5)
  1. INIPOMP [Interacting]
     Indication: DUODENAL ULCER
     Route: 048
     Dates: start: 20040101, end: 20090914
  2. BROMAZEPAM [Concomitant]
  3. CRESTOR [Suspect]
     Dosage: UNKNOWN
     Route: 048
     Dates: start: 20040101, end: 20090912
  4. NEXIUM [Interacting]
     Dosage: UNKNOWN
     Route: 048
     Dates: start: 20090811, end: 20090909
  5. SOLUPRED [Suspect]
     Dosage: 40 MG, FREQUENCY UNKNOWN
     Dates: start: 20090812, end: 20090909

REACTIONS (6)
  - DRUG ERUPTION [None]
  - DRUG INTERACTION [None]
  - EOSINOPHILIA [None]
  - INFECTION [None]
  - INFLAMMATION [None]
  - URTICARIA [None]
